FAERS Safety Report 25246574 (Version 1)
Quarter: 2025Q2

REPORT INFORMATION
  Report Type: Spontaneous
  Country: FR (occurrence: FR)
  Receive Date: 20250428
  Receipt Date: 20250428
  Transmission Date: 20250716
  Serious: Yes (Other)
  Sender: ACCORD
  Company Number: None

PATIENT
  Age: 74 Year
  Sex: Female

DRUGS (3)
  1. FLUOXETINE [Suspect]
     Active Substance: FLUOXETINE HYDROCHLORIDE
     Indication: Alcoholism
     Dates: start: 20241219, end: 20250219
  2. ACAMPROSATE CALCIUM [Suspect]
     Active Substance: ACAMPROSATE CALCIUM
     Indication: Alcoholism
     Dates: start: 20241219, end: 20250219
  3. NALMEFENE HYDROCHLORIDE [Suspect]
     Active Substance: NALMEFENE HYDROCHLORIDE
     Indication: Alcoholism
     Dosage: STRENGTH: 18 MG
     Dates: start: 20241219, end: 20250219

REACTIONS (1)
  - Vascular purpura [Recovering/Resolving]

NARRATIVE: CASE EVENT DATE: 20250219
